FAERS Safety Report 5478415-2 (Version None)
Quarter: 2007Q4

REPORT INFORMATION
  Report Type: 
  Country: None (occurrence: None)
  Receive Date: 20071005
  Receipt Date: 20070927
  Transmission Date: 20080405
  Serious: Yes (Other)
  Sender: FDA-Public Use
  Company Number: AR-AMGEN-US228058

PATIENT
  Sex: Male

DRUGS (11)
  1. PANITUMUMAB [Suspect]
     Indication: COLORECTAL CANCER
     Route: 042
     Dates: start: 20070412
  2. OXALIPLATIN [Concomitant]
     Route: 042
     Dates: start: 20070412
  3. LEUCOVORIN [Concomitant]
     Route: 042
     Dates: start: 20070412
  4. FLUOROURACIL [Concomitant]
     Route: 042
     Dates: start: 20070412
  5. XYLOCAINE [Concomitant]
     Route: 065
     Dates: start: 20070320
  6. LORAZEPAM [Concomitant]
     Route: 065
     Dates: start: 20030101
  7. ALPRAZOLAM [Concomitant]
     Route: 065
     Dates: start: 20030101
  8. DOMPERIDONE [Concomitant]
     Route: 065
     Dates: start: 20030101
  9. SIMETHICONE [Concomitant]
     Route: 065
     Dates: start: 20030101
  10. DEXAMETHASONE 0.5MG TAB [Concomitant]
     Route: 065
     Dates: start: 20070412
  11. ONDANSETRON [Concomitant]
     Route: 065
     Dates: start: 20070412

REACTIONS (1)
  - VENOUS THROMBOSIS [None]
